FAERS Safety Report 4354233-3 (Version None)
Quarter: 2004Q2

REPORT INFORMATION
  Report Type: 
  Country: None (occurrence: None)
  Receive Date: 20040506
  Receipt Date: 20040423
  Transmission Date: 20050107
  Serious: Yes (Life-Threatening)
  Sender: FDA-Public Use
  Company Number: JP-GLAXOSMITHKLINE-B0330995A

PATIENT
  Age: 76 Year
  Sex: Male

DRUGS (5)
  1. ZEFIX [Suspect]
     Indication: HEPATIC FUNCTION ABNORMAL
     Dosage: 100MG PER DAY
     Route: 048
     Dates: start: 20040301, end: 20040420
  2. URSO [Concomitant]
     Route: 048
  3. NEO-MINOPHAGEN C [Concomitant]
     Route: 042
  4. GLYCYRON [Concomitant]
     Route: 065
  5. CARDIOVASCULAR DRUGS (UNSPECIFIED) [Concomitant]
     Route: 065

REACTIONS (1)
  - HEPATIC FAILURE [None]
